FAERS Safety Report 18131139 (Version 6)
Quarter: 2025Q4

REPORT INFORMATION
  Report Type: Spontaneous
  Country: CA (occurrence: CA)
  Receive Date: 20200810
  Receipt Date: 20251110
  Transmission Date: 20260117
  Serious: Yes (Other)
  Sender: PFIZER
  Company Number: CA-PFIZER INC-2020291169

PATIENT
  Age: 64 Year
  Sex: Female

DRUGS (5)
  1. XELJANZ XR [Suspect]
     Active Substance: TOFACITINIB CITRATE
     Indication: Rheumatoid arthritis
     Dosage: 11 MG, 1X/DAY
     Route: 048
     Dates: start: 20200728
  2. HYDROXYCHLOROQUINE [Suspect]
     Active Substance: HYDROXYCHLOROQUINE
     Dosage: 200 MG, 2X/DAY
     Route: 065
     Dates: start: 2014
  3. CELEBREX [Concomitant]
     Active Substance: CELECOXIB
     Dosage: 200 MG, 2X/DAY
     Route: 048
     Dates: start: 2017
  4. PREMARIN [Concomitant]
     Active Substance: ESTROGENS, CONJUGATED
     Indication: Hysterectomy
     Dosage: 0.625 UG
     Route: 065
     Dates: start: 1995
  5. RABEPRAZOLE [Concomitant]
     Active Substance: RABEPRAZOLE
     Dosage: 20 MG, 1X/DAY
     Route: 065
     Dates: start: 2014

REACTIONS (42)
  - Arthropathy [Unknown]
  - Patella fracture [Unknown]
  - Meniscus injury [Unknown]
  - Gait disturbance [Unknown]
  - Illness [Not Recovered/Not Resolved]
  - Pain [Recovered/Resolved]
  - Diarrhoea [Recovered/Resolved]
  - Nausea [Not Recovered/Not Resolved]
  - Condition aggravated [Unknown]
  - Abdominal pain upper [Recovering/Resolving]
  - Discomfort [Unknown]
  - Eructation [Recovering/Resolving]
  - Frequent bowel movements [Recovering/Resolving]
  - Chills [Not Recovered/Not Resolved]
  - Weight abnormal [Unknown]
  - Asthenia [Not Recovered/Not Resolved]
  - Decreased appetite [Recovering/Resolving]
  - Vision blurred [Unknown]
  - Fatigue [Not Recovered/Not Resolved]
  - Somnolence [Unknown]
  - Productive cough [Unknown]
  - Back pain [Not Recovered/Not Resolved]
  - Faeces discoloured [Not Recovered/Not Resolved]
  - Headache [Unknown]
  - Musculoskeletal chest pain [Unknown]
  - Spinal pain [Unknown]
  - Anal incontinence [Unknown]
  - Chest pain [Unknown]
  - Abdominal discomfort [Unknown]
  - Ageusia [Unknown]
  - Pyrexia [Unknown]
  - Rash [Unknown]
  - Ulcer [Unknown]
  - Osteoarthritis [Unknown]
  - Depressed mood [Unknown]
  - Joint swelling [Unknown]
  - Oedema [Unknown]
  - Skin indentation [Unknown]
  - Tremor [Unknown]
  - Pollakiuria [Unknown]
  - Gallbladder disorder [Unknown]
  - Peripheral coldness [Unknown]

NARRATIVE: CASE EVENT DATE: 20200729
